FAERS Safety Report 9510532 (Version 2)
Quarter: 2014Q2

REPORT INFORMATION
  Report Type: Spontaneous
  Country: CN (occurrence: CN)
  Receive Date: 20130909
  Receipt Date: 20140516
  Transmission Date: 20141212
  Serious: Yes (Other)
  Sender: FDA-Public Use
  Company Number: PHHY2013CN098108

PATIENT
  Age: 58 Year
  Sex: Female

DRUGS (2)
  1. EXFORGE [Suspect]
     Indication: HYPERTENSION
     Dosage: 1 DF, A DAY
     Route: 048
     Dates: start: 20130801, end: 20130917
  2. LOTENSIN [Suspect]
     Dosage: UNK UKN, UNK

REACTIONS (2)
  - Blood pressure increased [Recovered/Resolved]
  - Oedema peripheral [Recovered/Resolved]
